FAERS Safety Report 13998826 (Version 1)
Quarter: 2017Q3

REPORT INFORMATION
  Report Type: Spontaneous
  Country: US (occurrence: US)
  Receive Date: 20170922
  Receipt Date: 20170922
  Transmission Date: 20171128
  Serious: No
  Sender: FDA-Public Use
  Company Number: None

PATIENT
  Age: 48 Year
  Sex: Female
  Weight: 68.85 kg

DRUGS (2)
  1. AZELASTINE [Suspect]
     Active Substance: AZELASTINE
     Indication: SEASONAL ALLERGY
     Dosage: QUANTITY:2 SPRAY(S);TWICE A DAY RESPIRATORY (INHALATION)?
     Route: 055
  2. VITAMIN B COMPLEX [Concomitant]
     Active Substance: CYANOCOBALAMIN\DEXPANTHENOL\NIACINAMIDE\PYRIDOXINE HYDROCHLORIDE\RIBOFLAVIN 5^-PHOSPHATE SODIUM\THIAMINE HYDROCHLORIDE\VITAMIN B COMPLEX

REACTIONS (2)
  - Anxiety [None]
  - Palpitations [None]

NARRATIVE: CASE EVENT DATE: 20170921
